FAERS Safety Report 19706716 (Version 1)
Quarter: 2021Q3

REPORT INFORMATION
  Report Type: Spontaneous
  Country: DE (occurrence: DE)
  Receive Date: 20210817
  Receipt Date: 20210817
  Transmission Date: 20211014
  Serious: Yes (Hospitalization)
  Sender: FDA-Public Use
  Company Number: DE-TEVA-2021-DE-1941201

PATIENT
  Age: 81 Year
  Sex: Male
  Weight: 62 kg

DRUGS (9)
  1. BISOPROLOL [Concomitant]
     Active Substance: BISOPROLOL
     Dosage: 5 MILLIGRAM DAILY;  1?0?0?0
  2. LEVOTHYROXIN NATRIUM [Concomitant]
     Dosage: 50 MICROGRAM DAILY;   1?0?0?0
  3. EDOXABAN [Suspect]
     Active Substance: EDOXABAN TOSYLATE
     Dosage: 60 MILLIGRAM DAILY;   1?0?0?0
  4. SPIRONOLACTONE. [Concomitant]
     Active Substance: SPIRONOLACTONE
     Dosage: 50 MILLIGRAM DAILY;  1?0?0?0
  5. PANTOPRAZOL [Concomitant]
     Active Substance: PANTOPRAZOLE SODIUM
     Dosage: 80 MILLIGRAM DAILY;  1?0?1?0
  6. LEVETIRACETAM. [Concomitant]
     Active Substance: LEVETIRACETAM
     Dosage: 1000 MILLIGRAM DAILY;  1?0?1?0
  7. ATORVASTATIN [Concomitant]
     Active Substance: ATORVASTATIN
     Dosage: 40 MILLIGRAM DAILY; 0?0?1?0
  8. IMATINIB. [Suspect]
     Active Substance: IMATINIB MESYLATE
     Dosage: SCHEME
  9. TAMSULOSIN [Concomitant]
     Active Substance: TAMSULOSIN
     Dosage: .4 MILLIGRAM DAILY;  0?0?1?0

REACTIONS (5)
  - Haematochezia [Unknown]
  - Nausea [Unknown]
  - General physical health deterioration [Unknown]
  - Anaemia [Unknown]
  - Vomiting [Unknown]
